FAERS Safety Report 4709027-3 (Version None)
Quarter: 2005Q3

REPORT INFORMATION
  Report Type: 
  Country: None (occurrence: None)
  Receive Date: 20050707
  Receipt Date: 20050620
  Transmission Date: 20060218
  Serious: Yes (Life-Threatening, Hospitalization, Other)
  Sender: FDA-Public Use
  Company Number: TRP_0151_2005

PATIENT
  Age: 45 Year
  Sex: Female

DRUGS (9)
  1. RIBASPHERE [Suspect]
     Indication: HEPATITIS C
     Dosage: DF PO
     Route: 048
     Dates: start: 20050128, end: 20050411
  2. PEG-INTRON [Suspect]
     Indication: HEPATITIS C
     Dosage: 120 MCG SC
     Route: 058
     Dates: start: 20050128, end: 20050411
  3. ALPRAZOLAM [Concomitant]
  4. LASIX [Concomitant]
  5. METOCLOPRAMIDE [Concomitant]
  6. NEXIUM [Concomitant]
  7. PREMARIN [Concomitant]
  8. PROPRANOLOL [Concomitant]
  9. ZELNORM [Concomitant]

REACTIONS (5)
  - DYSPHONIA [None]
  - IATROGENIC INJURY [None]
  - PNEUMONIA [None]
  - PROCEDURAL COMPLICATION [None]
  - VOCAL CORD PARALYSIS [None]
